FAERS Safety Report 9513470 (Version 1)
Quarter: 2013Q3

REPORT INFORMATION
  Report Type: Spontaneous
  Country: US (occurrence: US)
  Receive Date: 20130910
  Receipt Date: 20130910
  Transmission Date: 20140515
  Serious: No
  Sender: FDA-Public Use
  Company Number: US-TARO-2013P1003718

PATIENT
  Age: 72 Year
  Sex: Male
  Weight: 104.33 kg

DRUGS (8)
  1. WARFARIN SODIUM TABLETS USP 1MG [Suspect]
     Route: 048
     Dates: start: 20121218, end: 20130319
  2. WARFARIN SODIUM TABLETS USP 1MG [Suspect]
     Route: 048
     Dates: start: 20130320
  3. WARFARIN 5 MG [Suspect]
     Route: 048
  4. BENICAR [Concomitant]
  5. METOPROLOL [Concomitant]
  6. LIPITOR [Concomitant]
  7. ZETIA [Concomitant]
  8. UNSPECIFIED VITAMINS [Concomitant]

REACTIONS (1)
  - Dyspepsia [Not Recovered/Not Resolved]
